FAERS Safety Report 10667474 (Version 1)
Quarter: 2014Q4

REPORT INFORMATION
  Report Type: Spontaneous
  Country: ZA (occurrence: None)
  Receive Date: 20141218
  Receipt Date: 20141218
  Transmission Date: 20150529
  Serious: Yes (Other)
  Sender: FDA-Public Use
  Company Number: K201417016

PATIENT
  Age: 33 Year
  Sex: Male

DRUGS (5)
  1. EFAVIRENZ(EFAVIRENZ [Suspect]
     Active Substance: EFAVIRENZ
     Indication: HIV INFECTION
  2. UNKNOWN DRUG [Suspect]
     Active Substance: UNSPECIFIED INGREDIENT
     Indication: HIV INFECTION
  3. TENOFOVIR DISOPROXIL FUMARATE [Suspect]
     Active Substance: TENOFOVIR DISOPROXIL FUMARATE
     Indication: HIV INFECTION
  4. LAMIVUDINE. [Suspect]
     Active Substance: LAMIVUDINE
  5. LAMIVUDINE(LAMIVUDINE)TABLET [Suspect]
     Active Substance: LAMIVUDINE
     Indication: HIV INFECTION

REACTIONS (3)
  - Vitamin B12 deficiency [None]
  - Blindness [None]
  - Hereditary optic atrophy [None]
